FAERS Safety Report 8599349 (Version 3)
Quarter: 2015Q3

REPORT INFORMATION
  Report Type: Spontaneous
  Country: US (occurrence: US)
  Receive Date: 20120605
  Receipt Date: 20150817
  Transmission Date: 20151125
  Serious: Yes (Hospitalization, Congenital Anomaly, Other)
  Sender: FDA-Public Use
  Company Number: US-GLAXOSMITHKLINE-A0979882A

PATIENT
  Age: 0 Day
  Sex: Male

DRUGS (1)
  1. PAXIL [Suspect]
     Active Substance: PAROXETINE HYDROCHLORIDE
     Indication: PRODUCT USED FOR UNKNOWN INDICATION
     Dosage: 20 MG, QD
     Route: 064
     Dates: start: 1996, end: 1997

REACTIONS (25)
  - Congenital cardiovascular anomaly [Unknown]
  - Aortic stenosis [Unknown]
  - Pulmonary oedema [Unknown]
  - Shone complex [Unknown]
  - Coarctation of the aorta [Unknown]
  - Congenital pulmonary valve disorder [Unknown]
  - Tricuspid valve disease [Unknown]
  - Congenital musculoskeletal anomaly [Unknown]
  - Congenital renal disorder [Unknown]
  - Amnesia [Unknown]
  - Bundle branch block right [Unknown]
  - Foetal exposure during pregnancy [Unknown]
  - Ventricular septal defect [Unknown]
  - Mitral valve stenosis [Unknown]
  - Atrial septal defect [Unknown]
  - Renal aplasia [Unknown]
  - Arterial ligation [Unknown]
  - Hiatus hernia [Unknown]
  - Cardiac murmur [Unknown]
  - Rib deformity [Unknown]
  - Hemivertebra [Unknown]
  - Congenital scoliosis [Unknown]
  - Heart disease congenital [Unknown]
  - Patent ductus arteriosus [Unknown]
  - Atrioventricular block [Unknown]

NARRATIVE: CASE EVENT DATE: 19970321
